FAERS Safety Report 11628346 (Version 1)
Quarter: 2015Q4

REPORT INFORMATION
  Report Type: Spontaneous
  Country: GB (occurrence: GB)
  Receive Date: 20151014
  Receipt Date: 20151014
  Transmission Date: 20160304
  Serious: Yes (Other)
  Sender: FDA-Public Use
  Company Number: GB-TEVA-599693ACC

PATIENT
  Age: 41 Year
  Sex: Female
  Weight: 88.89 kg

DRUGS (2)
  1. TRIMETHOPRIM. [Suspect]
     Active Substance: TRIMETHOPRIM
     Indication: URINARY TRACT INFECTION
     Dosage: 400 MILLIGRAM DAILY; TWICE PER DAY FOR 3 DAYS; DAILY DOSE: 400 MILLIGRAM
     Route: 048
     Dates: start: 20150926, end: 20150926
  2. CERELLE [Concomitant]
     Indication: CONTRACEPTION
     Dosage: 400 MILLIGRAM DAILY;

REACTIONS (10)
  - Vomiting [Recovered/Resolved with Sequelae]
  - Hypersensitivity [Recovered/Resolved with Sequelae]
  - Paraesthesia [Recovered/Resolved with Sequelae]
  - Pyrexia [Recovered/Resolved with Sequelae]
  - Nausea [Recovered/Resolved with Sequelae]
  - Disorientation [Recovered/Resolved with Sequelae]
  - Tremor [Recovered/Resolved with Sequelae]
  - Rash pruritic [Recovered/Resolved with Sequelae]
  - Sneezing [Recovered/Resolved with Sequelae]
  - Diarrhoea [Recovered/Resolved with Sequelae]

NARRATIVE: CASE EVENT DATE: 20150926
